FAERS Safety Report 8069151-7 (Version None)
Quarter: 2012Q1

REPORT INFORMATION
  Report Type: 
  Country: None (occurrence: None)
  Receive Date: 20120125
  Receipt Date: 20120119
  Transmission Date: 20120608
  Serious: No
  Sender: FDA-Public Use
  Company Number: US-PFIZER INC-2012015910

PATIENT
  Sex: Female

DRUGS (1)
  1. PROCARDIA XL [Suspect]
     Dosage: UNK

REACTIONS (4)
  - DIZZINESS [None]
  - HEAD DISCOMFORT [None]
  - MALAISE [None]
  - VISION BLURRED [None]
